FAERS Safety Report 12704824 (Version 1)
Quarter: 2016Q3

REPORT INFORMATION
  Report Type: Report from Study
  Country: US (occurrence: US)
  Receive Date: 20160831
  Receipt Date: 20160831
  Transmission Date: 20161109
  Serious: Yes (Other)
  Sender: FDA-Public Use
  Company Number: US-MALLINCKRODT-T201603910

PATIENT
  Age: 52 Year
  Sex: Female

DRUGS (4)
  1. REPOSITORY CORTICOTROPIN INJECTION [Suspect]
     Active Substance: CORTICOTROPIN
     Dosage: 40 UNITS TWICE WKLY (SUN/WED)
     Route: 030
     Dates: start: 20160721
  2. LISINOPRIL. [Concomitant]
     Active Substance: LISINOPRIL
     Dosage: INCREASED DOSE
     Dates: start: 201608
  3. LISINOPRIL. [Concomitant]
     Active Substance: LISINOPRIL
     Indication: BLOOD PRESSURE ABNORMAL
     Dosage: UNKNOWN DOSE/FREQUENCY
  4. REPOSITORY CORTICOTROPIN INJECTION [Suspect]
     Active Substance: CORTICOTROPIN
     Indication: SARCOIDOSIS
     Dosage: 80 UNITS TWICE WKLY (SUN/WED)
     Route: 030
     Dates: start: 20160207, end: 2016

REACTIONS (11)
  - Malaise [Recovering/Resolving]
  - Rotator cuff syndrome [Not Recovered/Not Resolved]
  - Weight increased [Not Recovered/Not Resolved]
  - Dyspnoea [Unknown]
  - Aphonia [Recovered/Resolved]
  - Blood glucose fluctuation [Not Recovered/Not Resolved]
  - Therapy cessation [Recovered/Resolved]
  - Increased appetite [Unknown]
  - Hypersomnia [Unknown]
  - Blood pressure increased [Not Recovered/Not Resolved]
  - Fatigue [Recovering/Resolving]

NARRATIVE: CASE EVENT DATE: 2006
